FAERS Safety Report 5917357-2 (Version None)
Quarter: 2008Q4

REPORT INFORMATION
  Report Type: 
  Country: None (occurrence: None)
  Receive Date: 20081014
  Receipt Date: 20081014
  Transmission Date: 20090506
  Serious: Yes (Life-Threatening, Hospitalization, Disabling, Congenital Anomaly)
  Sender: FDA-Public Use
  Company Number: None

PATIENT
  Sex: Female
  Weight: 4.0824 kg

DRUGS (2)
  1. CYTOTEC [Suspect]
     Dosage: 1 DOSE EVERY 4 HOURS FOR 2 DAY
  2. CYTOTEC [Suspect]

REACTIONS (5)
  - BACTERIAL INFECTION [None]
  - GASTROINTESTINAL INFECTION [None]
  - MATERNAL DRUGS AFFECTING FOETUS [None]
  - NEONATAL DISORDER [None]
  - VOMITING NEONATAL [None]
